FAERS Safety Report 12715889 (Version 6)
Quarter: 2016Q4

REPORT INFORMATION
  Report Type: Report from Study
  Country: DE (occurrence: HU)
  Receive Date: 20160906
  Receipt Date: 20161223
  Transmission Date: 20170207
  Serious: Yes (Death, Hospitalization)
  Sender: FDA-Public Use
  Company Number: DE-ROCHE-1823240

PATIENT
  Age: 61 Year
  Sex: Male
  Weight: 92 kg

DRUGS (9)
  1. XIGDUO XR [Concomitant]
     Active Substance: DAPAGLIFLOZIN PROPANEDIOL\METFORMIN HYDROCHLORIDE
     Route: 065
     Dates: start: 20160811
  2. GRANISETRON [Concomitant]
     Active Substance: GRANISETRON
     Route: 065
     Dates: start: 20160713
  3. CISPLATIN. [Suspect]
     Active Substance: CISPLATIN
     Indication: OESOPHAGEAL ADENOCARCINOMA
     Dosage: LAST DOSE PRIOR TO SAE: 03/AUG/2016
     Route: 042
     Dates: start: 20160713
  4. DIMENHYDRINATE. [Concomitant]
     Active Substance: DIMENHYDRINATE
  5. CAPECITABINE. [Suspect]
     Active Substance: CAPECITABINE
     Indication: OESOPHAGEAL ADENOCARCINOMA
     Dosage: LAST DOSE PRIOR TO SAE: 03/AUG/2016
     Route: 048
     Dates: start: 20160713
  6. RAMIPRIL. [Concomitant]
     Active Substance: RAMIPRIL
  7. DEXAMETHASONE. [Concomitant]
     Active Substance: DEXAMETHASONE
     Route: 065
     Dates: start: 20160713
  8. EZETIMIBE. [Concomitant]
     Active Substance: EZETIMIBE
  9. RANITIDINE. [Concomitant]
     Active Substance: RANITIDINE

REACTIONS (1)
  - Pulmonary embolism [Fatal]

NARRATIVE: CASE EVENT DATE: 20160818
